FAERS Safety Report 5868082-8 (Version None)
Quarter: 2008Q3

REPORT INFORMATION
  Report Type: 
  Country: None (occurrence: None)
  Receive Date: 20080902
  Receipt Date: 20080408
  Transmission Date: 20090109
  Serious: No
  Sender: FDA-Public Use
  Company Number: US-ABBOTT-08P-163-0446154-00

PATIENT
  Age: 20 Year
  Sex: Male

DRUGS (2)
  1. DEPAKOTE ER [Suspect]
     Indication: ANGER
     Route: 048
     Dates: start: 20080207, end: 20080221
  2. DEPAKOTE ER [Suspect]
     Dates: start: 20080221

REACTIONS (1)
  - ERECTILE DYSFUNCTION [None]
